FAERS Safety Report 21329193 (Version 1)
Quarter: 2022Q3

REPORT INFORMATION
  Report Type: Spontaneous
  Country: ES (occurrence: ES)
  Receive Date: 20220913
  Receipt Date: 20220913
  Transmission Date: 20221026
  Serious: Yes (Other)
  Sender: FDA-Public Use
  Company Number: None

PATIENT
  Age: 81 Year
  Sex: Female

DRUGS (2)
  1. TRAMADOL [Suspect]
     Active Substance: TRAMADOL
     Indication: Pain
     Dosage: 62.5 MILLIGRAM, Q8H
     Route: 002
     Dates: start: 202206, end: 202206
  2. TRAMADOL [Suspect]
     Active Substance: TRAMADOL
     Indication: Pain
     Dosage: 12.5 MILLIGRAM, Q8H
     Route: 048
     Dates: start: 202206, end: 202206

REACTIONS (4)
  - Incorrect dosage administered [Unknown]
  - Incorrect product formulation administered [Unknown]
  - Dry mouth [Unknown]
  - Constipation [Unknown]

NARRATIVE: CASE EVENT DATE: 20220627
